FAERS Safety Report 23286933 (Version 1)
Quarter: 2023Q4

REPORT INFORMATION
  Report Type: Spontaneous
  Country: US (occurrence: None)
  Receive Date: 20231212
  Receipt Date: 20231212
  Transmission Date: 20240110
  Serious: Yes (Hospitalization)
  Sender: FDA-Public Use
  Company Number: None

PATIENT
  Age: 75 Year
  Sex: Male
  Weight: 94 kg

DRUGS (5)
  1. FLUOROURACIL [Suspect]
     Active Substance: FLUOROURACIL
     Dates: end: 20231129
  2. XELODA [Suspect]
     Active Substance: CAPECITABINE
     Dates: end: 20230913
  3. CAMPTOSAR [Suspect]
     Active Substance: IRINOTECAN HYDROCHLORIDE
     Dates: end: 20231129
  4. LEUCOVORIN CALCIUM [Suspect]
     Active Substance: LEUCOVORIN CALCIUM
     Dates: end: 20231129
  5. ELOXATIN [Suspect]
     Active Substance: OXALIPLATIN
     Dates: end: 20231129

REACTIONS (8)
  - Pallor [None]
  - Dizziness postural [None]
  - Tachycardia [None]
  - Palpitations [None]
  - Atrial fibrillation [None]
  - Pulmonary embolism [None]
  - Deep vein thrombosis [None]
  - Pericardial effusion [None]

NARRATIVE: CASE EVENT DATE: 20231202
